FAERS Safety Report 11851921 (Version 1)
Quarter: 2015Q4

REPORT INFORMATION
  Report Type: Spontaneous
  Country: IR (occurrence: IR)
  Receive Date: 20151218
  Receipt Date: 20151218
  Transmission Date: 20160305
  Serious: Yes (Congenital Anomaly)
  Sender: FDA-Public Use
  Company Number: IR-IPCA LABORATORIES LIMITED-IPC201512-000858

PATIENT

DRUGS (1)
  1. WARFARIN [Suspect]
     Active Substance: WARFARIN
     Route: 064

REACTIONS (3)
  - Nose deformity [Unknown]
  - Bone deformity [Unknown]
  - Foetal exposure during pregnancy [Unknown]
